FAERS Safety Report 12484111 (Version 2)
Quarter: 2016Q3

REPORT INFORMATION
  Report Type: Spontaneous
  Country: US (occurrence: US)
  Receive Date: 20160621
  Receipt Date: 20160719
  Transmission Date: 20161109
  Serious: No
  Sender: FDA-Public Use
  Company Number: US-B.I. PHARMACEUTICALS,INC./RIDGEFIELD-2016-BI-36813BP

PATIENT
  Sex: Male
  Weight: 79.38 kg

DRUGS (2)
  1. GLYXAMBI [Suspect]
     Active Substance: EMPAGLIFLOZIN\LINAGLIPTIN
     Dosage: DOSE PER APPLICATION/DAILY DOSE: 10MG-5MG
     Route: 048
     Dates: start: 20151106
  2. GLYXAMBI [Suspect]
     Active Substance: EMPAGLIFLOZIN\LINAGLIPTIN
     Indication: DIABETES MELLITUS
     Dosage: DOSE PER APPLICATION: 25 MG/ 5 MG
     Route: 048
     Dates: start: 20150922, end: 20151106

REACTIONS (1)
  - Constipation [Recovered/Resolved]
